FAERS Safety Report 19528040 (Version 37)
Quarter: 2025Q3

REPORT INFORMATION
  Report Type: Report from Study
  Country: US (occurrence: US)
  Receive Date: 20210713
  Receipt Date: 20250825
  Transmission Date: 20251021
  Serious: Yes (Hospitalization, Other)
  Sender: TAKEDA
  Company Number: US-TAKEDA-2021TUS039657

PATIENT
  Age: 62 Year
  Sex: Female
  Weight: 85 kg

DRUGS (27)
  1. HUMAN IMMUNOGLOBULIN G [Suspect]
     Active Substance: HUMAN IMMUNOGLOBULIN G
     Indication: Immunodeficiency common variable
     Dosage: 21 GRAM, 1/WEEK
  2. HUMAN IMMUNOGLOBULIN G [Suspect]
     Active Substance: HUMAN IMMUNOGLOBULIN G
     Indication: Primary immunodeficiency syndrome
     Dosage: UNK, UNK 1/WEEK
  3. HUMAN IMMUNOGLOBULIN G [Suspect]
     Active Substance: HUMAN IMMUNOGLOBULIN G
     Dosage: 21 GRAM, 1/WEEK
  4. ACETAMINOPHEN [Concomitant]
     Active Substance: ACETAMINOPHEN
  5. KLOR-CON [Concomitant]
     Active Substance: POTASSIUM CHLORIDE
  6. ACETAMINOPHEN\HYDROCODONE [Concomitant]
     Active Substance: ACETAMINOPHEN\HYDROCODONE
  7. PREDNISONE [Concomitant]
     Active Substance: PREDNISONE
  8. FLECAINIDE ACETATE [Concomitant]
     Active Substance: FLECAINIDE ACETATE
  9. FLUOXETINE HYDROCHLORIDE [Concomitant]
     Active Substance: FLUOXETINE HYDROCHLORIDE
  10. KEPPRA [Concomitant]
     Active Substance: LEVETIRACETAM
  11. ALLOPURINOL [Concomitant]
     Active Substance: ALLOPURINOL
  12. GABAPENTIN [Concomitant]
     Active Substance: GABAPENTIN
  13. EUTHYROX [Concomitant]
     Active Substance: LEVOTHYROXINE SODIUM
  14. VITAMIN E [Concomitant]
     Active Substance: .ALPHA.-TOCOPHEROL
  15. ERGOCALCIFEROL [Concomitant]
     Active Substance: ERGOCALCIFEROL
  16. AMOXICILLIN AND CLAVULANATE POTASSIUM [Concomitant]
     Active Substance: AMOXICILLIN\CLAVULANATE POTASSIUM
  17. DIVALPROEX SODIUM [Concomitant]
     Active Substance: DIVALPROEX SODIUM
  18. MONTELUKAST SODIUM [Concomitant]
     Active Substance: MONTELUKAST SODIUM
  19. IRON [Concomitant]
     Active Substance: IRON
  20. DIPHENHYDRAMINE HYDROCHLORIDE [Concomitant]
     Active Substance: DIPHENHYDRAMINE HYDROCHLORIDE
  21. Lmx [Concomitant]
  22. FUROSEMIDE [Concomitant]
     Active Substance: FUROSEMIDE
  23. RAYALDEE [Concomitant]
     Active Substance: CALCIFEDIOL
  24. AZITHROMYCIN [Concomitant]
     Active Substance: AZITHROMYCIN
  25. EPINEPHRINE [Concomitant]
     Active Substance: EPINEPHRINE
  26. ROPINIROLE HYDROCHLORIDE [Concomitant]
     Active Substance: ROPINIROLE HYDROCHLORIDE
  27. RANEXA [Concomitant]
     Active Substance: RANOLAZINE

REACTIONS (39)
  - Abscess [Unknown]
  - Illness [Unknown]
  - Dehydration [Unknown]
  - Atrial fibrillation [Unknown]
  - Urinary tract infection [Unknown]
  - Dysstasia [Unknown]
  - Chronic kidney disease [Unknown]
  - Cataract [Unknown]
  - Blood pressure decreased [Unknown]
  - Hip fracture [Unknown]
  - Infection [Unknown]
  - Cerebral haemorrhage [Unknown]
  - Colonic abscess [Unknown]
  - Cardiac failure [Unknown]
  - Haematoma [Unknown]
  - Asthenia [Unknown]
  - Chest pain [Unknown]
  - Pain in extremity [Unknown]
  - Cerebrovascular accident [Unknown]
  - Headache [Unknown]
  - Pelvic fracture [Unknown]
  - Fall [Unknown]
  - Weight increased [Unknown]
  - Tooth abscess [Unknown]
  - Streptococcal infection [Unknown]
  - Pharyngitis streptococcal [Not Recovered/Not Resolved]
  - COVID-19 [Unknown]
  - Peripheral swelling [Unknown]
  - Infusion site discharge [Unknown]
  - Upper respiratory tract infection [Not Recovered/Not Resolved]
  - Arthralgia [Unknown]
  - Heart rate increased [Unknown]
  - Oxygen saturation decreased [Unknown]
  - Malaise [Unknown]
  - Chills [Unknown]
  - Vomiting [Unknown]
  - Pyrexia [Unknown]
  - Diarrhoea [Unknown]
  - Fatigue [Unknown]

NARRATIVE: CASE EVENT DATE: 20220225
